FAERS Safety Report 23295216 (Version 2)
Quarter: 2024Q4

REPORT INFORMATION
  Report Type: Spontaneous
  Country: US (occurrence: US)
  Receive Date: 20231214
  Receipt Date: 20241217
  Transmission Date: 20250115
  Serious: No
  Sender: ALVOGEN
  Company Number: US-ALVOGEN-2023092365

PATIENT
  Sex: Female

DRUGS (1)
  1. FENTANYL [Suspect]
     Active Substance: FENTANYL
     Indication: Pain management
     Dosage: STRENGTH: 25 MCG/HOUR?EXP.: UU-MAR-2026

REACTIONS (2)
  - Device malfunction [Unknown]
  - Device adhesion issue [Unknown]
